FAERS Safety Report 8798195 (Version 2)
Quarter: 2015Q1

REPORT INFORMATION
  Report Type: Report from Study
  Country: US (occurrence: US)
  Receive Date: 20120920
  Receipt Date: 20150302
  Transmission Date: 20150721
  Serious: Yes (Death)
  Sender: FDA-Public Use
  Company Number: US-ROCHE-1092767

PATIENT
  Age: 56 Year
  Sex: Female

DRUGS (10)
  1. DEXAMETHASONE SODIUM METASULFOBENZOATE [Concomitant]
     Route: 042
  2. DEXAMETHASONE SODIUM METASULFOBENZOATE [Concomitant]
     Route: 042
  3. TYLENOL [Concomitant]
     Active Substance: ACETAMINOPHEN
  4. DOLASETRON MESYLATE [Concomitant]
     Active Substance: DOLASETRON MESYLATE
     Route: 042
  5. IRINOTECAN HYDROCHLORIDE. [Concomitant]
     Active Substance: IRINOTECAN HYDROCHLORIDE
     Route: 042
  6. ZOFRAN [Concomitant]
     Active Substance: ONDANSETRON HYDROCHLORIDE
  7. AVASTIN [Suspect]
     Active Substance: BEVACIZUMAB
     Indication: BRAIN NEOPLASM MALIGNANT
     Route: 042
     Dates: start: 20070802
  8. KEPPRA [Concomitant]
     Active Substance: LEVETIRACETAM
  9. DECADRON [Concomitant]
     Active Substance: DEXAMETHASONE
     Route: 065
  10. ATROPINE SULFATE. [Concomitant]
     Active Substance: ATROPINE SULFATE
     Route: 042

REACTIONS (17)
  - Headache [Recovered/Resolved]
  - Back pain [Unknown]
  - Urinary tract infection [Unknown]
  - Arthralgia [Unknown]
  - Neoplasm [Unknown]
  - Disease progression [Unknown]
  - Oedema [Unknown]
  - Death [Fatal]
  - Fatigue [Unknown]
  - Fall [Unknown]
  - Gait disturbance [Unknown]
  - Pain in extremity [Unknown]
  - Nausea [Unknown]
  - Confusional state [Unknown]
  - Vomiting [Unknown]
  - Dysstasia [Unknown]
  - Abasia [Unknown]

NARRATIVE: CASE EVENT DATE: 20080328
